FAERS Safety Report 12260705 (Version 1)
Quarter: 2016Q2

REPORT INFORMATION
  Report Type: Spontaneous
  Country: IN (occurrence: IN)
  Receive Date: 20160412
  Receipt Date: 20160412
  Transmission Date: 20160815
  Serious: Yes (Other)
  Sender: FDA-Public Use
  Company Number: IN-BAUSCH-BL-2016-007801

PATIENT
  Age: 6 Year
  Sex: Female

DRUGS (1)
  1. OFLOXACIN. [Suspect]
     Active Substance: OFLOXACIN
     Indication: PYREXIA
     Route: 065

REACTIONS (8)
  - Blister [Recovered/Resolved]
  - Conjunctival hyperaemia [Recovered/Resolved]
  - Rash generalised [Recovered/Resolved]
  - Erythema [Recovered/Resolved]
  - Pain [Recovered/Resolved]
  - Mouth ulceration [Recovered/Resolved]
  - Erythema of eyelid [Recovered/Resolved]
  - Papule [Recovered/Resolved]
